FAERS Safety Report 5344305-9 (Version None)
Quarter: 2007Q2

REPORT INFORMATION
  Report Type: 
  Country: None (occurrence: None)
  Receive Date: 20070604
  Receipt Date: 20070528
  Transmission Date: 20071010
  Serious: Yes (Life-Threatening)
  Sender: FDA-Public Use
  Company Number: JP-ASTRAZENECA-2007AP03092

PATIENT
  Age: 65 Year
  Sex: Female

DRUGS (4)
  1. DIPRIVAN [Suspect]
     Indication: ANAESTHESIA
     Route: 042
     Dates: start: 20040513, end: 20040513
  2. FENTANYL [Concomitant]
  3. VECURONIUM BROMIDE [Concomitant]
  4. ATROPINE [Concomitant]

REACTIONS (1)
  - CARDIAC ARREST [None]
